FAERS Safety Report 9892751 (Version 5)
Quarter: 2014Q2

REPORT INFORMATION
  Report Type: Spontaneous
  Country: US (occurrence: US)
  Receive Date: 20140212
  Receipt Date: 20140505
  Transmission Date: 20141212
  Serious: Yes (Death, Hospitalization, Other)
  Sender: FDA-Public Use
  Company Number: US-BAXTER-2014BAX006127

PATIENT
  Sex: Female

DRUGS (2)
  1. EXTRANEAL [Suspect]
     Indication: RENAL FAILURE CHRONIC
     Route: 033
     Dates: start: 201204, end: 201312
  2. EXTRANEAL [Suspect]
     Route: 033
     Dates: end: 20140411

REACTIONS (8)
  - Disease complication [Fatal]
  - Diabetic complication [Fatal]
  - Diabetes mellitus [Fatal]
  - Renal failure [Fatal]
  - Peripheral vascular disorder [Not Recovered/Not Resolved]
  - Condition aggravated [Not Recovered/Not Resolved]
  - Urinary tract infection [Recovering/Resolving]
  - Hyponatraemia [Not Recovered/Not Resolved]
